FAERS Safety Report 4378112-0 (Version None)
Quarter: 2004Q2

REPORT INFORMATION
  Report Type: 
  Country: None (occurrence: None)
  Receive Date: 20040616
  Receipt Date: 20040602
  Transmission Date: 20050107
  Serious: Yes (Death, Hospitalization, Disabling)
  Sender: FDA-Public Use
  Company Number: PHHO2004PH07809

PATIENT
  Age: 34 Year
  Sex: Male
  Weight: 62 kg

DRUGS (3)
  1. GLEEVEC [Suspect]
     Indication: CHRONIC MYELOID LEUKAEMIA
     Dosage: 400 MG, QD
     Route: 048
     Dates: start: 20030101
  2. GLEEVEC [Suspect]
     Dosage: 300 MG, QD
     Route: 048
     Dates: end: 20030701
  3. INSULIN [Concomitant]
     Indication: DIABETES MELLITUS NON-INSULIN-DEPENDENT
     Dosage: 15/30 INTERMEDIATE ACTING

REACTIONS (13)
  - ACUTE FEBRILE NEUTROPHILIC DERMATOSIS [None]
  - ANAEMIA [None]
  - ARTHRALGIA [None]
  - ASCITES [None]
  - CELLULITIS [None]
  - CEREBRAL HAEMORRHAGE [None]
  - DERMATITIS BULLOUS [None]
  - GENERALISED OEDEMA [None]
  - LEUKOCYTOSIS [None]
  - PNEUMONIA [None]
  - SEPSIS [None]
  - SKIN LESION [None]
  - THROMBOCYTOPENIA [None]
